FAERS Safety Report 20902661 (Version 1)
Quarter: 2022Q2

REPORT INFORMATION
  Report Type: Spontaneous
  Country: US (occurrence: US)
  Receive Date: 20220601
  Receipt Date: 20220601
  Transmission Date: 20220720
  Serious: No
  Sender: FDA-Public Use
  Company Number: US-PFIZER INC-2020285914

PATIENT
  Age: 43 Year
  Sex: Female
  Weight: 42.18 kg

DRUGS (1)
  1. PREMARIN [Suspect]
     Active Substance: ESTROGENS, CONJUGATED
     Indication: Hysterectomy
     Dosage: 0.9 MG, 1X/DAY (EVERY EVENING BEFORE BED)
     Route: 048
     Dates: start: 2006

REACTIONS (3)
  - Withdrawal syndrome [Unknown]
  - Headache [Unknown]
  - Off label use [Unknown]

NARRATIVE: CASE EVENT DATE: 20060101
